FAERS Safety Report 7480891-0 (Version None)
Quarter: 2011Q2

REPORT INFORMATION
  Report Type: 
  Country: None (occurrence: None)
  Receive Date: 20110506
  Receipt Date: 20110321
  Transmission Date: 20111010
  Serious: Yes (Other)
  Sender: FDA-Public Use
  Company Number: 010416

PATIENT
  Sex: Female
  Weight: 87 kg

DRUGS (6)
  1. MELOXICAM [Concomitant]
  2. METHOTREXATE [Concomitant]
  3. FOLIC ACID [Concomitant]
  4. DICLOFENAC SODIUM [Concomitant]
  5. CIMZIA [Suspect]
     Indication: RHEUMATOID ARTHRITIS
     Dosage: SEE IMAGE
     Route: 058
     Dates: start: 20060826, end: 20100331
  6. CIMZIA [Suspect]
     Indication: RHEUMATOID ARTHRITIS
     Dosage: SEE IMAGE
     Route: 058
     Dates: start: 20050825, end: 20060810

REACTIONS (2)
  - BACK PAIN [None]
  - LATENT TUBERCULOSIS [None]
